FAERS Safety Report 6878145-6 (Version None)
Quarter: 2010Q2

REPORT INFORMATION
  Report Type: 
  Country: None (occurrence: None)
  Receive Date: 20100617
  Receipt Date: 20090513
  Transmission Date: 20101027
  Serious: No
  Sender: FDA-Public Use
  Company Number: 20090176

PATIENT
  Age: 85 Year
  Sex: Female

DRUGS (3)
  1. CYANOCOBALAMIN INJ [Suspect]
     Indication: GLOSSODYNIA
     Dosage: MONTHLY
     Dates: start: 20080301
  2. COUMADIN [Concomitant]
  3. INSULIN [Concomitant]

REACTIONS (2)
  - HYPERGLYCAEMIA [None]
  - HYPOGLYCAEMIA [None]
